FAERS Safety Report 5357668-5 (Version None)
Quarter: 2007Q2

REPORT INFORMATION
  Report Type: 
  Country: None (occurrence: None)
  Receive Date: 20070612
  Receipt Date: 20070601
  Transmission Date: 20071010
  Serious: Yes (Hospitalization)
  Sender: FDA-Public Use
  Company Number: 2007BI011211

PATIENT
  Age: 49 Year
  Sex: Female
  Weight: 54.4316 kg

DRUGS (4)
  1. NATALIZUMAB [Suspect]
     Indication: DRUG USE FOR UNKNOWN INDICATION
     Dosage: 300 MG;QM;IV
     Route: 042
     Dates: start: 20070120
  2. ASPIRIN [Concomitant]
  3. ZANAFLEX [Concomitant]
  4. FLOMAX [Concomitant]

REACTIONS (11)
  - ANAEMIA [None]
  - BODY TEMPERATURE INCREASED [None]
  - CHEST PAIN [None]
  - CYSTITIS [None]
  - DEHYDRATION [None]
  - DIARRHOEA [None]
  - FATIGUE [None]
  - MUSCLE SPASMS [None]
  - ORAL INTAKE REDUCED [None]
  - PAIN [None]
  - VIRAL INFECTION [None]
